FAERS Safety Report 5950247-8 (Version None)
Quarter: 2008Q4

REPORT INFORMATION
  Report Type: 
  Country: None (occurrence: None)
  Receive Date: 20081112
  Receipt Date: 20081103
  Transmission Date: 20090506
  Serious: Yes (Other)
  Sender: FDA-Public Use
  Company Number: IE-TEVA-180129ISR

PATIENT
  Age: 56 Year
  Sex: Female

DRUGS (8)
  1. GABAPENTIN [Suspect]
  2. NIMESULIDE [Suspect]
  3. TRAMADOL HCL [Suspect]
  4. BENDROFLUMETHIAZIDE [Suspect]
  5. PAROXETINE HCL [Suspect]
  6. LEVOTHYROXINE SODIUM [Suspect]
  7. AMITRIPTYLINE HCL [Suspect]
  8. AMLODIPINE [Concomitant]

REACTIONS (2)
  - HEPATIC ENCEPHALOPATHY [None]
  - HEPATIC FAILURE [None]
